FAERS Safety Report 12942973 (Version 1)
Quarter: 2016Q4

REPORT INFORMATION
  Report Type: Spontaneous
  Country: US (occurrence: US)
  Receive Date: 20161115
  Receipt Date: 20161115
  Transmission Date: 20170207
  Serious: No
  Sender: FDA-Public Use
  Company Number: US-ENDO PHARMACEUTICALS INC.-2016-005461

PATIENT
  Age: 44 Year
  Sex: Male
  Weight: 77.18 kg

DRUGS (1)
  1. XIAFLEX [Suspect]
     Active Substance: COLLAGENASE CLOSTRIDIUM HISTOLYTICUM
     Indication: PEYRONIE^S DISEASE
     Dosage: FIRST CYCLE-FIRST INJECTION
     Route: 065
     Dates: start: 20160826, end: 20160826

REACTIONS (3)
  - Penile contusion [Not Recovered/Not Resolved]
  - Blood pressure decreased [Recovered/Resolved]
  - Penile pain [Not Recovered/Not Resolved]

NARRATIVE: CASE EVENT DATE: 20160826
